FAERS Safety Report 5791606-6 (Version None)
Quarter: 2008Q2

REPORT INFORMATION
  Report Type: 
  Country: None (occurrence: None)
  Receive Date: 20080625
  Receipt Date: 20080423
  Transmission Date: 20081010
  Serious: No
  Sender: FDA-Public Use
  Company Number: US-WYE-H03765608

PATIENT

DRUGS (1)
  1. TORISEL [Suspect]
     Indication: RENAL CELL CARCINOMA
     Dosage: INTRAVENOUS
     Route: 042
     Dates: start: 20080423, end: 20080423

REACTIONS (2)
  - ABDOMINAL PAIN [None]
  - FLUSHING [None]
